FAERS Safety Report 17476812 (Version 1)
Quarter: 2020Q1

REPORT INFORMATION
  Report Type: Report from Study
  Country: CA (occurrence: CA)
  Receive Date: 20200228
  Receipt Date: 20200228
  Transmission Date: 20200409
  Serious: Yes (Other)
  Sender: FDA-Public Use
  Company Number: CA-JNJFOC-20191006415

PATIENT
  Sex: Female
  Weight: 48 kg

DRUGS (5)
  1. DEXILANT [Concomitant]
     Active Substance: DEXLANSOPRAZOLE
  2. VITAMIN B12 [Concomitant]
     Active Substance: CYANOCOBALAMIN
  3. STELARA [Suspect]
     Active Substance: USTEKINUMAB
     Indication: CROHN^S DISEASE
     Route: 058
     Dates: start: 20190806
  4. STELARA [Suspect]
     Active Substance: USTEKINUMAB
     Route: 058
  5. ENTOCORT [Concomitant]
     Active Substance: BUDESONIDE

REACTIONS (8)
  - Endometriosis [Unknown]
  - Crohn^s disease [Unknown]
  - Cervical polyp [Unknown]
  - Dizziness [Unknown]
  - Off label use [Unknown]
  - Product use issue [Unknown]
  - Viral infection [Recovered/Resolved]
  - Nausea [Unknown]
